FAERS Safety Report 10230696 (Version 1)
Quarter: 2014Q2

REPORT INFORMATION
  Report Type: Spontaneous
  Country: US (occurrence: US)
  Receive Date: 20140611
  Receipt Date: 20140611
  Transmission Date: 20141212
  Serious: No
  Sender: FDA-Public Use
  Company Number: US-PFIZER INC-2014157831

PATIENT
  Sex: Male

DRUGS (3)
  1. VIAGRA [Suspect]
     Indication: MALE ORGASMIC DISORDER
     Dosage: UNK
     Route: 048
     Dates: start: 20140605
  2. VIAGRA [Suspect]
     Dosage: HALF OF 100MG TABLET
  3. BUSPAR [Concomitant]
     Indication: ANXIETY
     Dosage: UNK

REACTIONS (6)
  - Malaise [Unknown]
  - Pyrexia [Unknown]
  - Pollakiuria [Unknown]
  - Visual impairment [Unknown]
  - Photophobia [Unknown]
  - Headache [Unknown]
